FAERS Safety Report 23752739 (Version 2)
Quarter: 2024Q2

REPORT INFORMATION
  Report Type: Spontaneous
  Country: FI (occurrence: FI)
  Receive Date: 20240417
  Receipt Date: 20240530
  Transmission Date: 20240716
  Serious: Yes (Hospitalization, Other)
  Sender: FDA-Public Use
  Company Number: FI-002147023-NVSC2024FI079382

PATIENT
  Age: 35 Year
  Sex: Female

DRUGS (1)
  1. KESIMPTA [Suspect]
     Active Substance: OFATUMUMAB
     Indication: Relapsing-remitting multiple sclerosis
     Dosage: 20 MG (STARTING DOSE ON WEEKS 0, 1 AND 2 AFTER WHICH ADMINISTRATION EVERY 4 WEEKS STARTING ON WEEK 4
     Route: 058
     Dates: start: 20240411

REACTIONS (10)
  - Visual impairment [Recovered/Resolved]
  - Vision blurred [Recovered/Resolved]
  - Blindness unilateral [Recovering/Resolving]
  - Diplopia [Recovering/Resolving]
  - Pyrexia [Recovered/Resolved]
  - Headache [Unknown]
  - Chills [Recovered/Resolved]
  - Eye disorder [Recovering/Resolving]
  - Vision blurred [Recovering/Resolving]
  - Stress [Unknown]

NARRATIVE: CASE EVENT DATE: 20240411
